FAERS Safety Report 4880032-X (Version None)
Quarter: 2006Q1

REPORT INFORMATION
  Report Type: 
  Country: None (occurrence: None)
  Receive Date: 20060111
  Receipt Date: 20051010
  Transmission Date: 20060701
  Serious: No
  Sender: FDA-Public Use
  Company Number: 2005S1000217

PATIENT
  Age: 65 Year
  Weight: 94 kg

DRUGS (24)
  1. CUBICIN [Suspect]
     Indication: ENDOCARDITIS ENTEROCOCCAL
     Dosage: 500 MG;Q48H;IV
     Route: 042
     Dates: start: 20050915, end: 20051011
  2. CUBICIN [Suspect]
  3. INSULIN [Concomitant]
  4. PANTOPRAZOLE [Concomitant]
  5. MICONAZOLE [Concomitant]
  6. DOCUSATE SODIUM [Concomitant]
  7. SENNA [Concomitant]
  8. METOPROLOL [Concomitant]
  9. CITALOPRAM [Concomitant]
  10. DARBEPOETIN ALFA [Concomitant]
  11. AMIODARONE [Concomitant]
  12. NYSTATIN [Concomitant]
  13. ISOSORBIDE [Concomitant]
  14. BISACODYL [Concomitant]
  15. ACETAMINOPHEN [Concomitant]
  16. OXYCODONE [Concomitant]
  17. RASH CREAM [Concomitant]
  18. MAGNESIUM HYDROXIDE TAB [Concomitant]
  19. AMPICILLIN SODIUM [Concomitant]
  20. GENTAMICIN [Concomitant]
  21. FUROSEMIDE [Concomitant]
  22. PIPERACILLIN SODIUM/TAZOBACTAM SODIUM [Concomitant]
  23. VANCOMYCIN [Concomitant]
  24. AMPICILLIN SODIUM/SULBACTAM SODIUM [Concomitant]

REACTIONS (1)
  - EOSINOPHILIA [None]
